FAERS Safety Report 9918709 (Version 1)
Quarter: 2014Q1

REPORT INFORMATION
  Report Type: Report from Study
  Country: DE (occurrence: DE)
  Receive Date: 20140224
  Receipt Date: 20140224
  Transmission Date: 20141002
  Serious: Yes (Hospitalization)
  Sender: FDA-Public Use
  Company Number: DE-ROCHE-1351977

PATIENT
  Age: 71 Year
  Sex: Male

DRUGS (2)
  1. TOCILIZUMAB [Suspect]
     Indication: RHEUMATOID ARTHRITIS
     Route: 065
     Dates: start: 201203, end: 201301
  2. TOCILIZUMAB [Suspect]
     Route: 065
     Dates: start: 201303

REACTIONS (1)
  - Biliary colic [Unknown]
